FAERS Safety Report 21185060 (Version 3)
Quarter: 2022Q4

REPORT INFORMATION
  Report Type: Spontaneous
  Country: PL (occurrence: PL)
  Receive Date: 20220808
  Receipt Date: 20221213
  Transmission Date: 20230112
  Serious: Yes (Other)
  Sender: FDA-Public Use
  Company Number: None

PATIENT
  Age: 40 Year
  Sex: Female

DRUGS (17)
  1. FLUCONAZOLE [Interacting]
     Active Substance: FLUCONAZOLE
     Indication: Micturition disorder
     Dosage: 200 MG OF PER DAY
     Route: 065
  2. FLUCONAZOLE [Interacting]
     Active Substance: FLUCONAZOLE
     Indication: Vaginal discharge
  3. FLUCONAZOLE [Interacting]
     Active Substance: FLUCONAZOLE
     Indication: Dysuria
  4. CRANBERRY [Interacting]
     Active Substance: CRANBERRY
     Indication: Vaginal discharge
     Route: 065
  5. CRANBERRY [Interacting]
     Active Substance: CRANBERRY
     Indication: Dysuria
     Dosage: 300 MG
     Route: 065
  6. CRANBERRY [Interacting]
     Active Substance: CRANBERRY
     Indication: Blood uric acid increased
  7. ATORVASTATIN [Interacting]
     Active Substance: ATORVASTATIN
     Indication: Dyslipidaemia
     Dosage: 20 MG ONCE A DAY
     Route: 065
  8. BIOTIN [Interacting]
     Active Substance: BIOTIN
     Indication: Alopecia
     Dosage: 20 MG PER DAY
     Route: 065
  9. PAROXETINE [Interacting]
     Active Substance: PAROXETINE
     Indication: Depression
     Dosage: 20 MG PER DAY
     Route: 065
  10. PAROXETINE [Interacting]
     Active Substance: PAROXETINE
     Dosage: DOSE WAS INCREASED TO 40 MG PER DAY
     Route: 065
  11. QUETIAPINE [Interacting]
     Active Substance: QUETIAPINE
     Indication: Depression
     Dosage: DOSE WAS INCREASED TO 200 MG PER DAY, BEFORE BEDTIME
     Route: 065
  12. QUETIAPINE [Interacting]
     Active Substance: QUETIAPINE
     Indication: Affective disorder
     Dosage: 150 MG DAILY
     Route: 065
  13. LEVOTHYROXINE [Concomitant]
     Active Substance: LEVOTHYROXINE
     Indication: Hypothyroidism
     Route: 065
  14. ETHAMSYLATE [Concomitant]
     Active Substance: ETHAMSYLATE
     Indication: Epistaxis
     Route: 065
  15. ROSUVASTATIN [Concomitant]
     Active Substance: ROSUVASTATIN
     Indication: Dyslipidaemia
     Route: 065
  16. PREGABALIN [Concomitant]
     Active Substance: PREGABALIN
     Indication: Depression
     Route: 065
  17. PREGABALIN [Concomitant]
     Active Substance: PREGABALIN

REACTIONS (14)
  - Anxiety [Recovered/Resolved]
  - Epistaxis [Recovered/Resolved]
  - Hypothyroidism [Recovered/Resolved]
  - Food interaction [Recovering/Resolving]
  - Drug level increased [Recovering/Resolving]
  - Thrombocytopenia [Recovered/Resolved]
  - Leukopenia [Recovered/Resolved]
  - Asthenia [Recovered/Resolved]
  - Drug interaction [Recovered/Resolved]
  - Dysuria [Recovered/Resolved]
  - Thyroid disorder [Recovering/Resolving]
  - Memory impairment [Recovered/Resolved]
  - Product use in unapproved indication [Unknown]
  - Treatment failure [Unknown]
